FAERS Safety Report 9007266 (Version 2)
Quarter: 2013Q1

REPORT INFORMATION
  Report Type: Spontaneous
  Country: IT (occurrence: IT)
  Receive Date: 20130110
  Receipt Date: 20130118
  Transmission Date: 20140127
  Serious: Yes (Hospitalization, Other)
  Sender: FDA-Public Use
  Company Number: IT-PFIZER INC-2013008093

PATIENT
  Age: 71 Year
  Sex: Female

DRUGS (7)
  1. ALPRAZOLAM [Suspect]
     Indication: ANXIETY
     Dosage: 30 GTT, DAILY
     Route: 048
     Dates: start: 20080101, end: 20121122
  2. ANAFRANIL [Interacting]
     Indication: BIPOLAR DISORDER
     Dosage: 75 MG, DAILY
     Route: 048
     Dates: start: 20121022, end: 20121122
  3. LAMICTAL [Suspect]
     Indication: BIPOLAR DISORDER
     Dosage: 50 MG, DAILY
     Route: 048
     Dates: start: 20080101, end: 20121122
  4. FEVARIN [Interacting]
     Indication: DEPRESSION
     Dosage: 50 MG, DAILY
     Route: 048
     Dates: start: 20110101, end: 20121122
  5. PROVISACOR [Concomitant]
     Indication: TYPE 2 DIABETES MELLITUS
     Dosage: 5 MG, UNK
     Route: 048
  6. CARDIOASPIRIN [Concomitant]
     Dosage: 100 MG, UNK
  7. METFORMIN HYDROCHLORIDE [Concomitant]
     Indication: TYPE 2 DIABETES MELLITUS
     Dosage: 3000 MG, UNK
     Route: 048

REACTIONS (3)
  - Tremor [Recovering/Resolving]
  - Muscle rigidity [Recovering/Resolving]
  - Drug interaction [Recovering/Resolving]
